FAERS Safety Report 9271453 (Version 5)
Quarter: 2014Q2

REPORT INFORMATION
  Report Type: Spontaneous
  Country: US (occurrence: US)
  Receive Date: 20130506
  Receipt Date: 20140516
  Transmission Date: 20141212
  Serious: Yes (Other)
  Sender: FDA-Public Use
  Company Number: US-PFIZER INC-2013139229

PATIENT
  Age: 78 Year
  Sex: Female
  Weight: 72.56 kg

DRUGS (9)
  1. LYRICA [Suspect]
     Indication: DIABETIC NEUROPATHY
     Dosage: 75 MG, DAILY
     Route: 048
     Dates: start: 201211
  2. LYRICA [Suspect]
     Indication: ARTHRITIS
     Dosage: 75 MG, 2X/DAY
     Route: 048
     Dates: start: 20130111
  3. LYRICA [Suspect]
     Indication: NEUROPATHY PERIPHERAL
  4. ATORVASTATIN CALCIUM [Suspect]
     Indication: BLOOD CHOLESTEROL INCREASED
     Dosage: 20 MG/DAY
  5. METHOTREXATE [Concomitant]
     Indication: ARTHRITIS
     Dosage: 40 MG (EIGHT 5 MG PILLS), WEEKLY
     Route: 048
  6. LISINOPRIL [Concomitant]
     Dosage: UNK, DAILY
  7. MELOXICAM [Concomitant]
     Indication: ARTHRITIS
     Dosage: 15 MG/DAY
  8. OMEPRAZOLE [Concomitant]
     Dosage: 40 MG/DAY
  9. SERTRALINE [Concomitant]
     Indication: INSOMNIA
     Dosage: 50 MG/DAY
     Route: 048

REACTIONS (7)
  - Off label use [Unknown]
  - Hypertension [Unknown]
  - Dizziness [Recovered/Resolved]
  - Gastric disorder [Unknown]
  - Drug ineffective [Unknown]
  - Insomnia [Unknown]
  - Dysgraphia [Unknown]
